FAERS Safety Report 9743151 (Version 2)
Quarter: 2015Q3

REPORT INFORMATION
  Report Type: Spontaneous
  Country: US (occurrence: US)
  Receive Date: 20131210
  Receipt Date: 20150804
  Transmission Date: 20151125
  Serious: No
  Sender: FDA-Public Use
  Company Number: US-GILEAD-2009-0024376

PATIENT
  Age: 75 Year
  Sex: Male
  Weight: 89.36 kg

DRUGS (17)
  1. OXYGEN. [Concomitant]
     Active Substance: OXYGEN
  2. PROZAC [Concomitant]
     Active Substance: FLUOXETINE HYDROCHLORIDE
  3. METOPROLOL [Concomitant]
     Active Substance: METOPROLOL
  4. GLYBURIDE. [Concomitant]
     Active Substance: GLYBURIDE
  5. CATAPRES-TTS [Concomitant]
     Active Substance: CLONIDINE
  6. METFORMIN HCL [Concomitant]
     Active Substance: METFORMIN HYDROCHLORIDE
  7. POTASSIUM CHLORIDE. [Concomitant]
     Active Substance: POTASSIUM CHLORIDE
  8. LETAIRIS [Suspect]
     Active Substance: AMBRISENTAN
     Indication: PULMONARY ARTERIAL HYPERTENSION
     Route: 048
     Dates: start: 20090701
  9. ASPIRIN. [Concomitant]
     Active Substance: ASPIRIN
  10. DIGOXIN. [Concomitant]
     Active Substance: DIGOXIN
  11. FUROSEMIDE. [Concomitant]
     Active Substance: FUROSEMIDE
  12. COUMADIN [Concomitant]
     Active Substance: WARFARIN SODIUM
  13. TEKTURNA [Concomitant]
     Active Substance: ALISKIREN HEMIFUMARATE
  14. LANTUS [Concomitant]
     Active Substance: INSULIN GLARGINE
  15. LISINOPRIL. [Concomitant]
     Active Substance: LISINOPRIL
  16. CRESTOR [Concomitant]
     Active Substance: ROSUVASTATIN CALCIUM
  17. ISOSORBIDE. [Concomitant]
     Active Substance: ISOSORBIDE

REACTIONS (1)
  - Epistaxis [Unknown]
